FAERS Safety Report 16505728 (Version 6)
Quarter: 2020Q1

REPORT INFORMATION
  Report Type: Report from Study
  Country: US (occurrence: US)
  Receive Date: 20190701
  Receipt Date: 20200211
  Transmission Date: 20200409
  Serious: Yes (Other)
  Sender: FDA-Public Use
  Company Number: US-CLOVIS ONCOLOGY-CLO-2019-000984

PATIENT
  Age: 67 Year
  Sex: Female

DRUGS (3)
  1. RUBRACA [Suspect]
     Active Substance: RUCAPARIB CAMSYLATE
     Indication: OVARIAN CANCER
     Dosage: 200 MG, BID
     Route: 048
     Dates: start: 20190515, end: 20190625
  2. RUBRACA [Suspect]
     Active Substance: RUCAPARIB CAMSYLATE
     Dosage: 200 MG, BID
     Route: 048
     Dates: start: 20190806
  3. RUBRACA [Suspect]
     Active Substance: RUCAPARIB CAMSYLATE
     Dosage: 300 MG, BID
     Route: 048
     Dates: start: 20190626, end: 20190806

REACTIONS (14)
  - Cough [Recovering/Resolving]
  - Malaise [Unknown]
  - Fatigue [Recovering/Resolving]
  - Pain [Not Recovered/Not Resolved]
  - Nasopharyngitis [Recovering/Resolving]
  - Dysgeusia [Recovered/Resolved]
  - Depression [Not Recovered/Not Resolved]
  - Sunburn [Not Recovered/Not Resolved]
  - Product dose omission [Unknown]
  - Malignant neoplasm progression [Unknown]
  - Pruritus [Not Recovered/Not Resolved]
  - Neuropathy peripheral [Unknown]
  - Decreased appetite [Recovering/Resolving]
  - Photosensitivity reaction [Unknown]

NARRATIVE: CASE EVENT DATE: 2019
